FAERS Safety Report 19906917 (Version 2)
Quarter: 2021Q4

REPORT INFORMATION
  Report Type: Spontaneous
  Country: US (occurrence: US)
  Receive Date: 20210930
  Receipt Date: 20211012
  Transmission Date: 20220303
  Serious: Yes (Death, Other)
  Sender: FDA-Public Use
  Company Number: US-TEVA-2021-US-1958354

PATIENT
  Age: 14 Year
  Sex: Male

DRUGS (7)
  1. MELPHALAN [Suspect]
     Active Substance: MELPHALAN
     Indication: Embryonal rhabdomyosarcoma
     Dosage: INTRA-ARTERIAL INFUSION; A CATHETER WAS INSERTED THROUGH THE FEMORAL ARTERY AND NAVIGATED TO THE ...
     Route: 013
  2. CISPLATIN [Suspect]
     Active Substance: CISPLATIN
     Indication: Embryonal rhabdomyosarcoma
     Dosage: 7.1429 MG/M2 DAILY; INTRA-ARTERIAL INFUSION; IN 1 MG/ML D5 1/2 SODIUM CHLORIDE OVER 60 MINUTES; EVER
     Route: 013
  3. DOXORUBICIN [Suspect]
     Active Substance: DOXORUBICIN
     Indication: Embryonal rhabdomyosarcoma
     Dosage: .3214 MG/M2 DAILY; INTRA-ARTERIAL INFUSION; 25 ML D5 1/2 SODIUM CHLORIDE OVER 15 MINUTES; EVERY TWO
     Route: 013
  4. ETOPOSIDE [Suspect]
     Active Substance: ETOPOSIDE
     Indication: Embryonal rhabdomyosarcoma
     Route: 048
  5. DEXAMETHASONE [Concomitant]
     Active Substance: DEXAMETHASONE
     Indication: Premedication
     Route: 065
  6. ONDANSETRON [Concomitant]
     Active Substance: ONDANSETRON
     Indication: Premedication
     Route: 065
  7. SODIUM CHLORIDE [Concomitant]
     Active Substance: SODIUM CHLORIDE
     Indication: Product used for unknown indication
     Dosage: INTRA-ARTERIAL INFUSION; CISPLATIN IN 1 MG/ML D5 1/2 SODIUM CHLORIDE OVER 60 MINUTES AND DOXORUBI...
     Route: 013

REACTIONS (7)
  - Nasopharyngitis [Unknown]
  - Haematochezia [Unknown]
  - Mucosal inflammation [Unknown]
  - Stomatitis [Unknown]
  - Tinnitus [Unknown]
  - Myelosuppression [Unknown]
  - Arterial disorder [Unknown]
